FAERS Safety Report 16031729 (Version 1)
Quarter: 2019Q1

REPORT INFORMATION
  Report Type: Spontaneous
  Country: US (occurrence: US)
  Receive Date: 20190304
  Receipt Date: 20190304
  Transmission Date: 20190418
  Serious: Yes (Death)
  Sender: FDA-Public Use
  Company Number: US-KALEO, INC.-2019KL000032

PATIENT
  Sex: Female

DRUGS (1)
  1. EVZIO [Suspect]
     Active Substance: NALOXONE HYDROCHLORIDE
     Indication: TOXICITY TO VARIOUS AGENTS
     Dosage: FIRST SIGN OF RESPIRATORY DEPRESSION, COMA, OR OVERDOSE
     Dates: start: 20180907

REACTIONS (1)
  - Death [Fatal]
